FAERS Safety Report 24564371 (Version 1)
Quarter: 2024Q4

REPORT INFORMATION
  Report Type: Spontaneous
  Country: US (occurrence: None)
  Receive Date: 20241029
  Receipt Date: 20241029
  Transmission Date: 20250114
  Serious: No
  Sender: Public
  Company Number: None

PATIENT
  Age: 32 Year
  Sex: Female

DRUGS (1)
  1. BOTOX [Suspect]
     Active Substance: ONABOTULINUMTOXINA
     Indication: Migraine
     Dosage: OTHER ROUTE : INJECTEDBYPRESCRIBERINTRAMUSCULARLYINTOHEAD, NECK AND SHLDR;?
     Route: 050
     Dates: start: 202408

REACTIONS (1)
  - Maternal exposure during pregnancy [None]
